FAERS Safety Report 6942793-5 (Version None)
Quarter: 2010Q3

REPORT INFORMATION
  Report Type: 
  Country: None (occurrence: None)
  Receive Date: 20100826
  Receipt Date: 20100818
  Transmission Date: 20110219
  Serious: Yes (Death)
  Sender: FDA-Public Use
  Company Number: US-MYLANLABS-2010S1013345

PATIENT
  Age: 29 Year
  Sex: Female

DRUGS (10)
  1. FENTANYL CITRATE [Suspect]
     Indication: ABDOMINAL PAIN
     Dosage: Q72H
     Route: 062
     Dates: start: 20100201, end: 20100302
  2. FENTANYL CITRATE [Suspect]
     Dosage: Q72H
     Route: 062
     Dates: start: 20100302, end: 20100305
  3. FENTANYL CITRATE [Suspect]
     Route: 062
     Dates: start: 20100308
  4. LORAZEPAM [Concomitant]
  5. XANAX [Concomitant]
  6. VENTOLIN [Concomitant]
  7. DULCOLAX [Concomitant]
  8. LISINOPRIL [Concomitant]
  9. PREMARIN [Concomitant]
  10. METRONIDAZOLE [Concomitant]

REACTIONS (2)
  - FEELING ABNORMAL [None]
  - NARCOTIC INTOXICATION [None]
